FAERS Safety Report 9054263 (Version 1)
Quarter: 2013Q1

REPORT INFORMATION
  Report Type: Spontaneous
  Country: FR (occurrence: FR)
  Receive Date: 20130208
  Receipt Date: 20130208
  Transmission Date: 20140127
  Serious: Yes (Life-Threatening, Hospitalization)
  Sender: FDA-Public Use
  Company Number: FR-GLAXOSMITHKLINE-B0862838A

PATIENT
  Age: 60 None
  Sex: Female

DRUGS (4)
  1. ZINNAT [Suspect]
     Indication: BRONCHITIS
     Dosage: 1UNIT SINGLE DOSE
     Route: 048
     Dates: start: 20130102, end: 20130102
  2. TENORMINE [Concomitant]
  3. FLECAINE [Concomitant]
  4. PREVISCAN [Concomitant]

REACTIONS (12)
  - Anaphylactic shock [Recovered/Resolved]
  - Feeling hot [Recovered/Resolved]
  - Hyperhidrosis [Recovered/Resolved]
  - Malaise [Recovered/Resolved]
  - Loss of consciousness [Recovered/Resolved]
  - Feeling hot [Recovered/Resolved]
  - Miosis [Recovered/Resolved]
  - Cyanosis [Recovered/Resolved]
  - Generalised erythema [Recovered/Resolved]
  - Abdominal pain [Recovered/Resolved]
  - Fall [Recovered/Resolved]
  - Hypotension [Recovered/Resolved]
